FAERS Safety Report 8823268 (Version 2)
Quarter: 2012Q4

REPORT INFORMATION
  Report Type: 
  Country: GB (occurrence: GB)
  Receive Date: 20121003
  Receipt Date: 20121126
  Transmission Date: 20130627
  Serious: Yes (Hospitalization)
  Sender: FDA-Public Use
  Company Number: GB-GLAXOSMITHKLINE-B0833549A

PATIENT
  Sex: Female

DRUGS (8)
  1. SERETIDE [Suspect]
     Indication: ASTHMA
     Dosage: 2PUFF Twice per day
     Route: 055
     Dates: start: 201102, end: 20120917
  2. SERETIDE [Suspect]
     Indication: ASTHMA
     Dosage: 1PUFF Twice per day
     Route: 055
     Dates: start: 20120918
  3. INSULIN [Concomitant]
  4. METFORMIN [Concomitant]
  5. VENTOLIN [Concomitant]
  6. DIURETIC [Concomitant]
  7. CHOLESTEROL [Concomitant]
  8. OMEPRAZOLE [Concomitant]

REACTIONS (8)
  - Pneumonia [Recovered/Resolved]
  - Cheilitis [Recovering/Resolving]
  - Stomatitis [Recovering/Resolving]
  - Tongue ulceration [Recovering/Resolving]
  - Muscle spasms [Not Recovered/Not Resolved]
  - Asthma [Unknown]
  - Nasopharyngitis [Unknown]
  - Sneezing [Unknown]
